FAERS Safety Report 7699352-9 (Version None)
Quarter: 2011Q3

REPORT INFORMATION
  Report Type: 
  Country: None (occurrence: None)
  Receive Date: 20110819
  Receipt Date: 20110808
  Transmission Date: 20111222
  Serious: Yes (Hospitalization, Other)
  Sender: FDA-Public Use
  Company Number: US-BAYER-2011-042319

PATIENT
  Age: 27 Year
  Sex: Female
  Weight: 59 kg

DRUGS (5)
  1. PROPOXYPHENE-N WITH APAP [Concomitant]
  2. YAZ [Suspect]
     Indication: PREMENSTRUAL SYNDROME
     Dosage: UNK
     Dates: start: 20060101, end: 20070101
  3. CIPROFLOXACIN [Concomitant]
     Dosage: 500 MG, UNK
  4. ACETAMINOPHEN AND CODEINE PHOSPHATE #3 [Concomitant]
  5. TRAMADOL HCL [Concomitant]
     Dosage: 50 MG, UNK

REACTIONS (2)
  - CHOLECYSTITIS ACUTE [None]
  - PAIN [None]
